FAERS Safety Report 17827871 (Version 1)
Quarter: 2020Q2

REPORT INFORMATION
  Report Type: Spontaneous
  Country: US (occurrence: US)
  Receive Date: 20200526
  Receipt Date: 20200526
  Transmission Date: 20200714
  Serious: Yes (Death)
  Sender: FDA-Public Use
  Company Number: None

PATIENT
  Age: 87 Year
  Sex: Male
  Weight: 65.07 kg

DRUGS (15)
  1. NORVASC [Concomitant]
     Active Substance: AMLODIPINE BESYLATE
  2. PRADAXA [Concomitant]
     Active Substance: DABIGATRAN ETEXILATE MESYLATE
  3. ADVAIR DISKUS [Concomitant]
     Active Substance: FLUTICASONE PROPIONATE\SALMETEROL XINAFOATE
  4. KEYTRUDA [Suspect]
     Active Substance: PEMBROLIZUMAB
     Indication: MALIGNANT MELANOMA
     Dosage: ?          OTHER FREQUENCY:EVERY 3 WEEKS;?
     Route: 042
     Dates: start: 20191202
  5. COZAAR [Concomitant]
     Active Substance: LOSARTAN POTASSIUM
  6. FISH OIL + VITAMIN D [Concomitant]
  7. VITAMIN B12 [Concomitant]
     Active Substance: CYANOCOBALAMIN
  8. ASPIRIN. [Concomitant]
     Active Substance: ASPIRIN
  9. PANTOPRAZOLE [Concomitant]
     Active Substance: PANTOPRAZOLE
  10. METOPROLOL. [Concomitant]
     Active Substance: METOPROLOL
  11. KLOR-CON [Concomitant]
     Active Substance: POTASSIUM CHLORIDE
  12. VITAMIN C [Concomitant]
     Active Substance: ASCORBIC ACID
  13. FUROSEMIDE. [Concomitant]
     Active Substance: FUROSEMIDE
  14. MULTIVITAMINS [Concomitant]
     Active Substance: VITAMINS
  15. LIPITOR [Concomitant]
     Active Substance: ATORVASTATIN CALCIUM

REACTIONS (1)
  - Disease progression [None]
